FAERS Safety Report 11265423 (Version 1)
Quarter: 2015Q3

REPORT INFORMATION
  Report Type: Spontaneous
  Country: US (occurrence: None)
  Receive Date: 20150710
  Receipt Date: 20150710
  Transmission Date: 20151125
  Serious: Yes (Other)
  Sender: FDA-Public Use
  Company Number: None

PATIENT
  Age: 59 Year
  Sex: Female

DRUGS (1)
  1. AUBAGIO [Suspect]
     Active Substance: TERIFLUNOMIDE
     Indication: MULTIPLE SCLEROSIS
     Dosage: TAKE 1 TABLET BY MOUTH DAILY
     Route: 048

REACTIONS (12)
  - Fall [None]
  - Vomiting [None]
  - Nausea [None]
  - Local swelling [None]
  - Muscular weakness [None]
  - Pyrexia [None]
  - Dyspnoea [None]
  - Joint injury [None]
  - Swelling face [None]
  - Influenza like illness [None]
  - Pain [None]
  - Migraine [None]
